FAERS Safety Report 13197228 (Version 1)
Quarter: 2017Q1

REPORT INFORMATION
  Report Type: Spontaneous
  Country: US (occurrence: US)
  Receive Date: 20170208
  Receipt Date: 20170208
  Transmission Date: 20170428
  Serious: No
  Sender: FDA-Public Use
  Company Number: US-BAYER-2017-024701

PATIENT
  Sex: Female

DRUGS (1)
  1. CLIMARA [Suspect]
     Active Substance: ESTRADIOL
     Dosage: DAILY DOSE .05 MG
     Route: 062
     Dates: start: 201612

REACTIONS (2)
  - Blood follicle stimulating hormone decreased [None]
  - Pre-existing condition improved [None]
